FAERS Safety Report 17419514 (Version 2)
Quarter: 2020Q1

REPORT INFORMATION
  Report Type: Spontaneous
  Country: US (occurrence: US)
  Receive Date: 20200214
  Receipt Date: 20200218
  Transmission Date: 20200409
  Serious: Yes (Hospitalization, Other)
  Sender: FDA-Public Use
  Company Number: US-PFIZER INC-2020065142

PATIENT
  Age: 56 Year
  Sex: Female
  Weight: 68.93 kg

DRUGS (4)
  1. PROTONIX [Suspect]
     Active Substance: PANTOPRAZOLE SODIUM
     Dosage: 40 MG, 2X/DAY
     Route: 048
     Dates: start: 20200204, end: 20200207
  2. PROTONIX [Suspect]
     Active Substance: PANTOPRAZOLE SODIUM
     Indication: GASTRIC ULCER HAEMORRHAGE
     Dosage: 40 MG, 2X/DAY
     Route: 048
     Dates: start: 20191023, end: 201912
  3. PEPCID [Suspect]
     Active Substance: FAMOTIDINE
     Dosage: 20 MG, 2X/DAY [20MG ORAL TWICE A DAY OR 40MG A DAY]
     Route: 048
  4. PEPCID [Suspect]
     Active Substance: FAMOTIDINE
     Indication: ULCER HAEMORRHAGE
     Dosage: 20 MG, 2X/DAY [20MG ORAL TWICE A DAY OR 40MG A DAY]
     Route: 048
     Dates: start: 201902

REACTIONS (20)
  - Vision blurred [Not Recovered/Not Resolved]
  - Micturition urgency [Unknown]
  - Eye swelling [Not Recovered/Not Resolved]
  - Arthralgia [Recovering/Resolving]
  - Joint swelling [Recovering/Resolving]
  - Hypotension [Recovered/Resolved]
  - Nightmare [Unknown]
  - Eye disorder [Unknown]
  - Tachycardia [Recovered/Resolved]
  - Contusion [Not Recovered/Not Resolved]
  - Systemic lupus erythematosus [Unknown]
  - Bronchospasm [Recovered/Resolved]
  - Weight decreased [Not Recovered/Not Resolved]
  - Asthenia [Not Recovered/Not Resolved]
  - Pollakiuria [Recovered/Resolved]
  - Loss of personal independence in daily activities [Recovered/Resolved with Sequelae]
  - Asthma [Unknown]
  - Ocular hyperaemia [Not Recovered/Not Resolved]
  - Eye pain [Not Recovered/Not Resolved]
  - Drug hypersensitivity [Unknown]

NARRATIVE: CASE EVENT DATE: 201910
